FAERS Safety Report 20081078 (Version 1)
Quarter: 2021Q4

REPORT INFORMATION
  Report Type: Spontaneous
  Country: US (occurrence: US)
  Receive Date: 20211117
  Receipt Date: 20211117
  Transmission Date: 20220303
  Serious: No
  Sender: FDA-Public Use
  Company Number: US-MYLANLABS-2021M1075660

PATIENT
  Sex: Female
  Weight: 52 kg

DRUGS (1)
  1. WIXELA INHUB [Suspect]
     Active Substance: FLUTICASONE PROPIONATE\SALMETEROL XINAFOATE
     Indication: Asthma
     Dosage: 250/50 MICROGRAM, BID (TWICE A DAY)
     Route: 055

REACTIONS (2)
  - Sensation of foreign body [Not Recovered/Not Resolved]
  - Product quality issue [Not Recovered/Not Resolved]
